FAERS Safety Report 7339066-8 (Version None)
Quarter: 2011Q1

REPORT INFORMATION
  Report Type: 
  Country: None (occurrence: None)
  Receive Date: 20110228
  Receipt Date: 20110216
  Transmission Date: 20110831
  Serious: Yes (Hospitalization)
  Sender: FDA-Public Use
  Company Number: 027598

PATIENT
  Sex: Female

DRUGS (1)
  1. CIMZIA [Suspect]
     Indication: RHEUMATOID ARTHRITIS
     Dosage: (SUBCUTANEOUS)
     Route: 058
     Dates: start: 20101201, end: 20110216

REACTIONS (4)
  - APPLICATION SITE HYPERSENSITIVITY [None]
  - OEDEMA PERIPHERAL [None]
  - DERMATITIS ALLERGIC [None]
  - SENSATION OF HEAVINESS [None]
